FAERS Safety Report 4680404-2 (Version None)
Quarter: 2005Q2

REPORT INFORMATION
  Report Type: 
  Country: None (occurrence: None)
  Receive Date: 20050601
  Receipt Date: 20050516
  Transmission Date: 20051028
  Serious: Yes (Congenital Anomaly)
  Sender: FDA-Public Use
  Company Number: FR_050506429

PATIENT
  Sex: Male

DRUGS (2)
  1. ZYPREXA [Suspect]
  2. DEPAKOTE [Concomitant]

REACTIONS (5)
  - CARDIAC DISORDER [None]
  - CONGENITAL ANOMALY [None]
  - DRUG EXPOSURE DURING PREGNANCY [None]
  - RHABDOMYOMA [None]
  - TUBEROUS SCLEROSIS [None]
